FAERS Safety Report 7432743-X (Version None)
Quarter: 2011Q2

REPORT INFORMATION
  Report Type: 
  Country: None (occurrence: None)
  Receive Date: 20110422
  Receipt Date: 20110415
  Transmission Date: 20111010
  Serious: Yes (Other)
  Sender: FDA-Public Use
  Company Number: A0923196A

PATIENT
  Age: 58 Year
  Sex: Female

DRUGS (1)
  1. TRIZIVIR [Suspect]
     Indication: HIV INFECTION
     Dosage: 300MG TWICE PER DAY
     Route: 048
     Dates: start: 20041201, end: 20110301

REACTIONS (6)
  - BLOOD BILIRUBIN INCREASED [None]
  - NAUSEA [None]
  - CHROMATURIA [None]
  - DYSPEPSIA [None]
  - JAUNDICE [None]
  - ERUCTATION [None]
